FAERS Safety Report 8980730 (Version 2)
Quarter: 2013Q1

REPORT INFORMATION
  Report Type: Report from Study
  Country: DE (occurrence: DE)
  Receive Date: 20121221
  Receipt Date: 20130328
  Transmission Date: 20140127
  Serious: Yes (Hospitalization)
  Sender: FDA-Public Use
  Company Number: DE-TEVA-376375GER

PATIENT
  Age: 59 None
  Sex: Female
  Weight: 60 kg

DRUGS (8)
  1. MYOCET [Suspect]
     Indication: BREAST CANCER
     Route: 042
     Dates: start: 20120625, end: 20121130
  2. MYOCET [Suspect]
     Route: 042
     Dates: start: 20121212
  3. CARBOPLATIN [Suspect]
     Indication: BREAST CANCER
     Route: 042
     Dates: start: 20120625, end: 20121130
  4. CARBOPLATIN [Suspect]
     Route: 042
     Dates: start: 20121212
  5. AVASTIN [Suspect]
     Indication: BREAST CANCER
     Route: 042
     Dates: start: 20120625
  6. TAXOL [Suspect]
     Indication: BREAST CANCER
     Route: 042
     Dates: start: 20120625, end: 20121130
  7. TAXOL [Suspect]
     Route: 042
     Dates: start: 20121212
  8. L-THYROX [Concomitant]
     Dates: start: 2000

REACTIONS (5)
  - Sinusitis [Recovered/Resolved]
  - Mucosal inflammation [Recovered/Resolved]
  - Pyrexia [Recovered/Resolved]
  - Cough [Recovered/Resolved]
  - General physical health deterioration [Recovered/Resolved]
